FAERS Safety Report 24288974 (Version 1)
Quarter: 2024Q3

REPORT INFORMATION
  Report Type: Spontaneous
  Country: US (occurrence: US)
  Receive Date: 20240906
  Receipt Date: 20240906
  Transmission Date: 20241017
  Serious: No
  Sender: LUPIN
  Company Number: US-LUPIN PHARMACEUTICALS INC.-2024-08499

PATIENT

DRUGS (1)
  1. ALBUTEROL SULFATE [Suspect]
     Active Substance: ALBUTEROL SULFATE
     Indication: Dyspnoea
     Dosage: UNK, TID (2 PUFFS BY MOUTH 3 TIMES A DAY)
     Dates: start: 20240730

REACTIONS (3)
  - COVID-19 [Not Recovered/Not Resolved]
  - Drug dose omission by device [Unknown]
  - Wrong technique in product usage process [Unknown]
